FAERS Safety Report 25576894 (Version 1)
Quarter: 2025Q3

REPORT INFORMATION
  Report Type: Spontaneous
  Country: US (occurrence: None)
  Receive Date: 20250718
  Receipt Date: 20250718
  Transmission Date: 20251021
  Serious: Yes (Hospitalization)
  Sender: FDA-CTU
  Company Number: None

PATIENT
  Age: 76 Year
  Sex: Male
  Weight: 82 kg

DRUGS (2)
  1. DEXAMETHASONE [Suspect]
     Active Substance: DEXAMETHASONE
     Dates: end: 20250422
  2. LENALIDOMIDE [Suspect]
     Active Substance: LENALIDOMIDE
     Dates: end: 20250421

REACTIONS (11)
  - Syncope [None]
  - Dyspnoea [None]
  - Loss of consciousness [None]
  - Loss of consciousness [None]
  - Urinary incontinence [None]
  - Oedema [None]
  - Atrial fibrillation [None]
  - Sinus arrest [None]
  - Bradycardia [None]
  - Thrombocytosis [None]
  - Leukocytosis [None]

NARRATIVE: CASE EVENT DATE: 20250516
